FAERS Safety Report 4754878-2 (Version None)
Quarter: 2005Q3

REPORT INFORMATION
  Report Type: 
  Country: None (occurrence: None)
  Receive Date: 20050826
  Receipt Date: 20050826
  Transmission Date: 20060218
  Serious: Yes (Hospitalization, Other)
  Sender: FDA-Public Use
  Company Number: None

PATIENT
  Age: 72 Year
  Sex: Female
  Weight: 71.6683 kg

DRUGS (3)
  1. ALTOCOR EXTENDED RELEASE TABS (LOVASTATIN) DISTRIBUTED BY ANDRX LABS I [Suspect]
     Indication: BLOOD CHOLESTEROL INCREASED
     Dosage: 60 MG DAILY BY MOUTH
     Dates: start: 20030102, end: 20040201
  2. CELEBREX [Suspect]
     Indication: PAIN
     Dosage: 100 MG PRN
     Dates: start: 20020507, end: 20040211
  3. ESTRACE [Concomitant]

REACTIONS (2)
  - DRUG INTERACTION [None]
  - MYOCARDIAL INFARCTION [None]
